FAERS Safety Report 7585296-X (Version None)
Quarter: 2011Q2

REPORT INFORMATION
  Report Type: 
  Country: None (occurrence: None)
  Receive Date: 20110629
  Receipt Date: 20110629
  Transmission Date: 20111010
  Serious: Yes (Hospitalization)
  Sender: FDA-Public Use
  Company Number: None

PATIENT
  Age: 20 Year
  Sex: Female
  Weight: 72.5755 kg

DRUGS (1)
  1. PAXIL [Suspect]
     Indication: POSTPARTUM DEPRESSION
     Dosage: 20MG-40MG DAILY PO
     Route: 048
     Dates: start: 20030529, end: 20030629

REACTIONS (16)
  - SCREAMING [None]
  - POOR PERSONAL HYGIENE [None]
  - ANXIETY [None]
  - ABNORMAL BEHAVIOUR [None]
  - INSOMNIA [None]
  - PSYCHOTIC DISORDER [None]
  - HALLUCINATIONS, MIXED [None]
  - CONFUSIONAL STATE [None]
  - ABNORMAL DREAMS [None]
  - HYPERHIDROSIS [None]
  - ECONOMIC PROBLEM [None]
  - ENERGY INCREASED [None]
  - BIPOLAR DISORDER [None]
  - TREATMENT NONCOMPLIANCE [None]
  - SUICIDAL IDEATION [None]
  - CONVULSION [None]
